FAERS Safety Report 10409563 (Version 1)
Quarter: 2014Q3

REPORT INFORMATION
  Report Type: Spontaneous
  Country: CN (occurrence: None)
  Receive Date: 20140822
  Receipt Date: 20140822
  Transmission Date: 20150326
  Serious: Yes (Other)
  Sender: FDA-Public Use
  Company Number: 2014CN01112

PATIENT

DRUGS (5)
  1. METHYLPREDNISOLONE (METHYLPREDNISOLONE) [Concomitant]
     Active Substance: METHYLPREDNISOLONE
  2. TACROLIMUS (TACROLIMUS) [Concomitant]
     Active Substance: TACROLIMUS
  3. HBIG [Suspect]
     Active Substance: HUMAN HEPATITIS B VIRUS IMMUNE GLOBULIN
     Indication: PROPHYLAXIS
     Dosage: 2 UNITS, MONTHLY, INTRAMUSCULAR?
     Route: 030
  4. CYCLOSPORINE (CYCLOSPORINE) [Concomitant]
  5. LAMIVUDINE (LAMIVUDINE) [Suspect]
     Active Substance: LAMIVUDINE
     Indication: PROPHYLAXIS
     Route: 048

REACTIONS (2)
  - Hepatitis B [None]
  - Disease recurrence [None]
